FAERS Safety Report 10596657 (Version 2)
Quarter: 2014Q4

REPORT INFORMATION
  Report Type: Spontaneous
  Country: CN (occurrence: CN)
  Receive Date: 20141120
  Receipt Date: 20141120
  Transmission Date: 20150529
  Serious: Yes (Other)
  Sender: FDA-Public Use
  Company Number: CN-ELI_LILLY_AND_COMPANY-CN201411002407

PATIENT
  Sex: Male

DRUGS (2)
  1. METFORMIN [Concomitant]
     Active Substance: METFORMIN HYDROCHLORIDE
     Indication: BLOOD GLUCOSE
     Dosage: 1 DF, TID
     Route: 048
  2. HUMULIN R [Suspect]
     Active Substance: INSULIN HUMAN
     Indication: DIABETES MELLITUS
     Dosage: 16 DF, TID
     Route: 058

REACTIONS (3)
  - Blood glucose increased [Unknown]
  - Asthenia [Unknown]
  - Vomiting [Unknown]

NARRATIVE: CASE EVENT DATE: 20141028
